FAERS Safety Report 7233482-0 (Version None)
Quarter: 2011Q1

REPORT INFORMATION
  Report Type: 
  Country: None (occurrence: None)
  Receive Date: 20110119
  Receipt Date: 20110111
  Transmission Date: 20110831
  Serious: Yes (Other)
  Sender: FDA-Public Use
  Company Number: CHPA2011US00920

PATIENT
  Age: 69 Year
  Sex: Female
  Weight: 65.76 kg

DRUGS (2)
  1. EXCEDRIN (MIGRAINE) [Suspect]
     Indication: HEADACHE
     Dosage: 2 DF, Q5H
     Route: 048
  2. EXCEDRIN (MIGRAINE) [Suspect]
     Indication: BACK PAIN

REACTIONS (4)
  - INCORRECT DOSE ADMINISTERED [None]
  - BACK INJURY [None]
  - DRUG DEPENDENCE [None]
  - INTENTIONAL DRUG MISUSE [None]
